FAERS Safety Report 11328484 (Version 1)
Quarter: 2015Q3

REPORT INFORMATION
  Report Type: Report from Study
  Country: NO (occurrence: NO)
  Receive Date: 20150731
  Receipt Date: 20150731
  Transmission Date: 20151125
  Serious: Yes (Death)
  Sender: FDA-Public Use
  Company Number: US-ASTRAZENECA-2015SE73688

PATIENT
  Age: 71 Year
  Sex: Male
  Weight: 79 kg

DRUGS (4)
  1. SHORT-ACTING ANTICHOLINERGIC (SAMA) [Concomitant]
  2. ROFLUMILAST [Suspect]
     Active Substance: ROFLUMILAST
     Indication: CHRONIC OBSTRUCTIVE PULMONARY DISEASE
     Route: 048
     Dates: start: 20140123, end: 20141011
  3. SHORT-ACTING BETA2 AGONIST (SABA) [Concomitant]
  4. LEUKOTRIENE ANTAGONIST [Concomitant]

REACTIONS (1)
  - Death [Fatal]

NARRATIVE: CASE EVENT DATE: 20141011
